FAERS Safety Report 10087925 (Version 1)
Quarter: 2014Q2

REPORT INFORMATION
  Report Type: Report from Study
  Country: FR (occurrence: FR)
  Receive Date: 20140419
  Receipt Date: 20140419
  Transmission Date: 20141212
  Serious: Yes (Hospitalization)
  Sender: FDA-Public Use
  Company Number: FR-ROCHE-1381133

PATIENT
  Age: 71 Year
  Sex: Male
  Weight: 90 kg

DRUGS (7)
  1. RITUXIMAB [Suspect]
     Indication: CHRONIC LYMPHOCYTIC LEUKAEMIA
     Dosage: C4:D22
     Route: 042
     Dates: start: 20140107
  2. FLUDARABINE [Suspect]
     Indication: CHRONIC LYMPHOCYTIC LEUKAEMIA
     Dosage: C4:D22
     Route: 048
     Dates: start: 20140107
  3. CYCLOPHOSPHAMIDE [Suspect]
     Indication: CHRONIC LYMPHOCYTIC LEUKAEMIA
     Dosage: C4:D22
     Route: 048
     Dates: start: 20140107
  4. DEPAMIDE [Concomitant]
     Indication: AFFECTIVE DISORDER
     Route: 065
  5. BACTRIM FORTE [Concomitant]
     Route: 048
     Dates: start: 20140108
  6. ZELITREX [Concomitant]
     Route: 048
     Dates: start: 20140108
  7. TAHOR [Concomitant]
     Indication: HYPERCHOLESTEROLAEMIA
     Route: 048

REACTIONS (1)
  - Hyperthermia [Recovered/Resolved]
